FAERS Safety Report 5889238 (Version 4)
Quarter: 2013Q1

REPORT INFORMATION
  Report Type: Spontaneous
  Country: DK (occurrence: DK)
  Receive Date: 20050930
  Receipt Date: 20130131
  Transmission Date: 20140127
  Serious: Yes (Death, Life-Threatening, Hospitalization)
  Sender: FDA-Public Use
  Company Number: DK-JNJFOC-20050906511

PATIENT
  Age: 32 Year
  Sex: Female
  Weight: 83 kg

DRUGS (14)
  1. RISPERDAL CONSTA [Suspect]
     Indication: SCHIZOPHRENIA
     Route: 030
     Dates: start: 20050706, end: 20050714
  2. RISPERDAL [Suspect]
     Indication: SCHIZOPHRENIA
     Route: 048
     Dates: start: 20050706, end: 20050714
  3. ORAP [Concomitant]
     Indication: PSYCHOTIC DISORDER
     Route: 048
     Dates: start: 19921014, end: 20050714
  4. SEROQUEL [Concomitant]
     Indication: PSYCHOTIC DISORDER
     Route: 065
     Dates: start: 19921122, end: 20050714
  5. DISIPAL [Concomitant]
     Indication: PRODUCT USED FOR UNKNOWN INDICATION
     Route: 065
     Dates: start: 19990714, end: 20050714
  6. PANTOLOC [Concomitant]
     Indication: GASTRIC ULCER
     Route: 065
     Dates: start: 19990815, end: 20050714
  7. NOVYNETTE [Concomitant]
     Indication: PRODUCT USED FOR UNKNOWN INDICATION
     Route: 065
  8. RIVOTRIL [Concomitant]
     Indication: PSYCHOTIC DISORDER
     Route: 065
     Dates: start: 19940810, end: 20050714
  9. GAVISCON NOS [Concomitant]
     Indication: PRODUCT USED FOR UNKNOWN INDICATION
     Dosage: MIXT 15 ML P.N. MAX. X 3
     Route: 065
  10. OXAZEPAM [Concomitant]
     Indication: PRODUCT USED FOR UNKNOWN INDICATION
     Dosage: 15 MG P.N.MAX. X 4
     Route: 065
  11. PRIMPERAN [Concomitant]
     Indication: PRODUCT USED FOR UNKNOWN INDICATION
     Dosage: 20 MG P.N. MAX. 2
     Route: 065
  12. TRUXAL [Concomitant]
     Indication: PSYCHOTIC DISORDER
     Dosage: 50-100 MG P.N. MAX 250MG
     Route: 065
     Dates: start: 19980712, end: 20050714
  13. LACTULOSE [Concomitant]
  14. PARACETAMOL [Concomitant]
     Indication: PRODUCT USED FOR UNKNOWN INDICATION
     Dosage: 1 G P.N. MAX.X 3
     Route: 065

REACTIONS (10)
  - Sudden death [Fatal]
  - Convulsion [Not Recovered/Not Resolved]
  - Neuroleptic malignant syndrome [Not Recovered/Not Resolved]
  - Weight increased [Not Recovered/Not Resolved]
  - Hallucination [Not Recovered/Not Resolved]
  - Muscle spasms [Unknown]
  - Vomiting [Not Recovered/Not Resolved]
  - Gastric ulcer [Unknown]
  - Restlessness [Not Recovered/Not Resolved]
  - Insomnia [Not Recovered/Not Resolved]
